FAERS Safety Report 6105482-5 (Version None)
Quarter: 2009Q1

REPORT INFORMATION
  Report Type: 
  Country: None (occurrence: None)
  Receive Date: 20090306
  Receipt Date: 20090227
  Transmission Date: 20090719
  Serious: Yes (Hospitalization)
  Sender: FDA-Public Use
  Company Number: A0771633A

PATIENT
  Age: 55 Year
  Sex: Male
  Weight: 81.8 kg

DRUGS (14)
  1. AVANDIA [Suspect]
     Indication: DIABETES MELLITUS
     Dosage: 4MG PER DAY
     Route: 048
     Dates: start: 20021009, end: 20080101
  2. AVANDARYL [Suspect]
     Indication: DIABETES MELLITUS
     Route: 048
     Dates: start: 20050101, end: 20080101
  3. GLYBURIDE [Concomitant]
  4. PRAVASTATIN [Concomitant]
  5. LIPITOR [Concomitant]
  6. COZAAR [Concomitant]
  7. HYZAAR [Concomitant]
  8. ALLOPURINOL [Concomitant]
  9. RANITIDINE [Concomitant]
  10. RAMIPRIL [Concomitant]
  11. TRIAMTERENE [Concomitant]
  12. SYNTHROID [Concomitant]
  13. LEVITRA [Concomitant]
  14. ADALAT [Concomitant]

REACTIONS (1)
  - MYOCARDIAL INFARCTION [None]
